FAERS Safety Report 25374542 (Version 1)
Quarter: 2025Q2

REPORT INFORMATION
  Report Type: Spontaneous
  Country: US (occurrence: None)
  Receive Date: 20250528
  Receipt Date: 20250528
  Transmission Date: 20250716
  Serious: No
  Sender: FDA-CTU
  Company Number: None

PATIENT

DRUGS (1)
  1. MONTELUKAST [Suspect]
     Active Substance: MONTELUKAST

REACTIONS (3)
  - Adverse drug reaction [None]
  - Throat tightness [None]
  - Urticaria [None]

NARRATIVE: CASE EVENT DATE: 20250528
